FAERS Safety Report 25608744 (Version 1)
Quarter: 2025Q3

REPORT INFORMATION
  Report Type: Spontaneous
  Country: EU (occurrence: EU)
  Receive Date: 20250726
  Receipt Date: 20250726
  Transmission Date: 20251020
  Serious: Yes (Hospitalization)
  Sender: ALEXION PHARMACEUTICALS
  Company Number: None

PATIENT
  Age: 1 Year
  Sex: Male
  Weight: 10.7 kg

DRUGS (2)
  1. ESOMEPRAZOLE [Suspect]
     Active Substance: ESOMEPRAZOLE
     Indication: Gastrooesophageal reflux disease
     Dates: start: 20240608, end: 20240807
  2. ESOMEPRAZOLE [Suspect]
     Active Substance: ESOMEPRAZOLE
     Dosage: 1 DOSAGE FORM, 1/DAY
     Dates: start: 20240808, end: 20250428

REACTIONS (1)
  - Torus fracture [Recovering/Resolving]

NARRATIVE: CASE EVENT DATE: 20250424
